FAERS Safety Report 5406128-1 (Version None)
Quarter: 2007Q3

REPORT INFORMATION
  Report Type: 
  Country: None (occurrence: None)
  Receive Date: 20070806
  Receipt Date: 20070802
  Transmission Date: 20080115
  Serious: Yes (Death)
  Sender: FDA-Public Use
  Company Number: JP-BRISTOL-MYERS SQUIBB COMPANY-13820295

PATIENT
  Age: 58 Year
  Sex: Female

DRUGS (5)
  1. BRIPLATIN [Suspect]
     Indication: OVARIAN CANCER
     Route: 041
     Dates: start: 19970313, end: 20021001
  2. VEPESID [Suspect]
     Indication: OVARIAN CANCER
     Route: 048
     Dates: start: 20021001, end: 20021001
  3. ENDOXAN [Suspect]
     Indication: OVARIAN CANCER
     Route: 042
  4. ADRIAMYCIN PFS [Suspect]
     Indication: OVARIAN CANCER
     Route: 042
  5. IRINOTECAN HCL [Suspect]
     Indication: OVARIAN CANCER
     Route: 042

REACTIONS (1)
  - MYELODYSPLASTIC SYNDROME [None]
